FAERS Safety Report 5702412-2 (Version None)
Quarter: 2008Q2

REPORT INFORMATION
  Report Type: 
  Country: None (occurrence: None)
  Receive Date: 20080408
  Receipt Date: 20080326
  Transmission Date: 20081010
  Serious: Yes (Other)
  Sender: FDA-Public Use
  Company Number: 100#08#2008-01829

PATIENT
  Age: 85 Year
  Sex: Female

DRUGS (9)
  1. PROPAFENONE HCL [Suspect]
     Indication: DRUG USE FOR UNKNOWN INDICATION
     Dosage: 150 MG EVERY 12 HOURS
  2. VENLAFAXINE ER (VENLAFAXINE) [Suspect]
     Indication: AFFECTIVE DISORDER
     Dosage: 75 MG (DAILY), 150 MG (DOSE INCREASED) (DAILY)
  3. VENLAFAXINE ER (VENLAFAXINE) [Suspect]
     Indication: AFFECTIVE DISORDER
     Dosage: 75 MG (DAILY), 150 MG (DOSE INCREASED) (DAILY)
  4. RAMIPRIL [Concomitant]
  5. TICLOPIDINE HYDROCHLORIDE [Concomitant]
  6. TORSEMIDE [Concomitant]
  7. THEOPHYLLINE [Concomitant]
  8. ACETAMINOPHEN [Concomitant]
  9. TRIAZOLAM [Concomitant]

REACTIONS (5)
  - CEREBRAL ATROPHY [None]
  - DRUG EFFECT DECREASED [None]
  - DRUG INTERACTION [None]
  - HALLUCINATION, VISUAL [None]
  - PSYCHOMOTOR HYPERACTIVITY [None]
